FAERS Safety Report 11569939 (Version 1)
Quarter: 2015Q3

REPORT INFORMATION
  Report Type: Spontaneous
  Country: US (occurrence: None)
  Receive Date: 20150928
  Receipt Date: 20150928
  Transmission Date: 20151125
  Serious: Yes (Hospitalization)
  Sender: FDA-Public Use
  Company Number: None

PATIENT
  Age: 72 Year
  Sex: Male
  Weight: 81 kg

DRUGS (2)
  1. ZESTRIL [Concomitant]
     Active Substance: LISINOPRIL
  2. ZITHROMAX [Suspect]
     Active Substance: AZITHROMYCIN DIHYDRATE
     Indication: COUGH
     Dosage: 2 ON DAY ONE THEN 1 QD X4 QD ORAL
     Route: 048
     Dates: start: 20150923, end: 20150923

REACTIONS (1)
  - Angioedema [None]

NARRATIVE: CASE EVENT DATE: 20150923
